FAERS Safety Report 8446514 (Version 7)
Quarter: 2013Q2

REPORT INFORMATION
  Report Type: Report from Study
  Country: JP (occurrence: JP)
  Receive Date: 20120307
  Receipt Date: 20130520
  Transmission Date: 20140414
  Serious: Yes (Hospitalization, Other)
  Sender: FDA-Public Use
  Company Number: JP-VERTEX PHARMACEUTICAL INC.-AE-2012-003188

PATIENT
  Age: 67 Year
  Sex: Male

DRUGS (15)
  1. VX-950 (TELAPREVIR) [Suspect]
     Indication: CHRONIC HEPATITIS C
     Dosage: 2250 MG, QD
     Route: 048
     Dates: start: 20120224, end: 20120228
  2. PEGINTRON [Suspect]
     Indication: CHRONIC HEPATITIS C
     Dosage: 1.5 ?G/KG, QW
     Route: 058
     Dates: start: 20120224, end: 20120612
  3. REBETOL [Suspect]
     Indication: CHRONIC HEPATITIS C
     Dosage: 800 MG, QD
     Route: 048
     Dates: start: 20120224, end: 20120228
  4. REBETOL [Suspect]
     Dosage: 800 MG, QD
     Route: 048
     Dates: start: 20120302, end: 20120326
  5. REBETOL [Suspect]
     Dosage: 400 MG, QD
     Route: 048
     Dates: start: 20120327, end: 20120618
  6. HUMALOG [Concomitant]
     Dosage: 6 UT, TID
     Route: 058
  7. NORVASC [Concomitant]
     Dosage: 5 MG, QD
     Route: 048
  8. CARDENALIN [Concomitant]
     Dosage: 1 MG, QD
     Route: 048
  9. DIOVAN [Concomitant]
     Dosage: 80 MG, QD
     Route: 048
  10. LASIX [Concomitant]
     Dosage: 20 MG, QD
     Route: 048
  11. LOXONIN [Concomitant]
     Dosage: 60 MG, QD
     Route: 048
     Dates: start: 20120224, end: 20120806
  12. TAKEPRON [Concomitant]
     Dosage: 15 MG, QD
     Route: 048
     Dates: start: 20120224, end: 20120607
  13. ANTEBATE [Concomitant]
     Dosage: 25 G, QD
     Route: 061
     Dates: start: 20120224
  14. PETROLATUM SALICYLATE [Concomitant]
     Dosage: 25 G, QD
     Route: 061
     Dates: start: 20120224
  15. BAYASPIRIN [Concomitant]
     Dosage: 100 MG, QD
     Route: 048

REACTIONS (5)
  - Neutrophil count decreased [Recovered/Resolved]
  - Erythema [Recovered/Resolved]
  - Decreased appetite [Recovered/Resolved]
  - Nausea [Recovered/Resolved]
  - Haemoglobin decreased [None]
